FAERS Safety Report 5585422-8 (Version None)
Quarter: 2008Q1

REPORT INFORMATION
  Report Type: 
  Country: None (occurrence: None)
  Receive Date: 20080109
  Receipt Date: 20080107
  Transmission Date: 20080703
  Serious: Yes (Life-Threatening)
  Sender: FDA-Public Use
  Company Number: US-ASTRAZENECA-2008AC00046

PATIENT
  Age: 72 Year
  Sex: Male

DRUGS (4)
  1. GEFITINIB [Suspect]
     Indication: LUNG ADENOCARCINOMA STAGE IV
     Dosage: TEMPORARILY STOPPED
     Route: 048
  2. GEFITINIB [Interacting]
     Route: 048
  3. GEMCITABINE [Interacting]
     Indication: LUNG ADENOCARCINOMA STAGE IV
     Dosage: 5 CYCLES
  4. CARBOPLATIN [Interacting]
     Indication: LUNG ADENOCARCINOMA STAGE IV
     Dosage: 5 CYCLES

REACTIONS (2)
  - DRUG INTERACTION [None]
  - MYELODYSPLASTIC SYNDROME [None]
